FAERS Safety Report 12333799 (Version 2)
Quarter: 2016Q4

REPORT INFORMATION
  Report Type: Spontaneous
  Country: US (occurrence: US)
  Receive Date: 20160504
  Receipt Date: 20161013
  Transmission Date: 20170207
  Serious: No
  Sender: FDA-Public Use
  Company Number: US-ROCHE-1677090

PATIENT
  Sex: Male

DRUGS (8)
  1. ESBRIET [Suspect]
     Active Substance: PIRFENIDONE
     Indication: IDIOPATHIC PULMONARY FIBROSIS
     Dosage: STARTED ABOUT 4-5 WEEKS AGO
     Route: 048
  2. ESBRIET [Suspect]
     Active Substance: PIRFENIDONE
     Dosage: THREE CAPSULES THRICE A DAY
     Route: 048
     Dates: start: 20151211
  3. OXYGEN. [Concomitant]
     Active Substance: OXYGEN
     Indication: LUNG DISORDER
     Dosage: 24/7 SET AT 3.20 PERCENT
     Route: 065
  4. ESBRIET [Suspect]
     Active Substance: PIRFENIDONE
     Dosage: STARTED ABOUT 4-5 WEEKS AGO
     Route: 048
     Dates: start: 20151212, end: 20160318
  5. CLARITIN [Concomitant]
     Active Substance: LORATADINE
     Indication: HYPERSENSITIVITY
  6. TAMSULOSIN [Concomitant]
     Active Substance: TAMSULOSIN
     Route: 065
  7. PREDNISONE. [Concomitant]
     Active Substance: PREDNISONE
     Route: 065
  8. OMEPRAZOLE. [Concomitant]
     Active Substance: OMEPRAZOLE
     Route: 065

REACTIONS (6)
  - Urinary incontinence [Unknown]
  - Malaise [Unknown]
  - Epistaxis [Unknown]
  - Drug ineffective [Unknown]
  - Nasal disorder [Not Recovered/Not Resolved]
  - Pollakiuria [Not Recovered/Not Resolved]
